FAERS Safety Report 10205456 (Version 1)
Quarter: 2014Q2

REPORT INFORMATION
  Report Type: Spontaneous
  Country: GB (occurrence: GB)
  Receive Date: 20140529
  Receipt Date: 20140529
  Transmission Date: 20141212
  Serious: Yes (Other)
  Sender: FDA-Public Use
  Company Number: GB-TEVA-482932ISR

PATIENT
  Age: 69 Year
  Sex: Female
  Weight: 78 kg

DRUGS (13)
  1. FUROSEMIDE [Suspect]
     Dates: start: 20140409
  2. AMLODIPINE [Concomitant]
     Dates: start: 20140204
  3. ATORVASTATIN [Concomitant]
     Dates: start: 20140204
  4. BENDROFLUMETHIAZIDE [Concomitant]
     Dates: start: 20140204
  5. CANESTEN [Concomitant]
     Dates: start: 20140228, end: 20140307
  6. CODEINE PHOSPHATE [Concomitant]
     Dates: start: 20140204
  7. DOXAZOSIN [Concomitant]
     Dates: start: 20140204
  8. GAVISCON [Concomitant]
     Dates: start: 20140204
  9. GLICLAZIDE [Concomitant]
     Dates: start: 20140507
  10. LEVOTHYROXINE [Concomitant]
     Dates: start: 20140204
  11. METFORMIN [Concomitant]
     Dates: start: 20140204
  12. PARACETAMOL [Concomitant]
     Dates: start: 20140204
  13. SPIRONOLACTONE [Concomitant]
     Dates: start: 20140204

REACTIONS (1)
  - Renal impairment [Recovered/Resolved]
